FAERS Safety Report 5921562-9 (Version None)
Quarter: 2008Q4

REPORT INFORMATION
  Report Type: 
  Country: None (occurrence: None)
  Receive Date: 20081017
  Receipt Date: 20081015
  Transmission Date: 20090506
  Serious: Yes (Hospitalization, Other)
  Sender: FDA-Public Use
  Company Number: AU-BRISTOL-MYERS SQUIBB COMPANY-14372007

PATIENT
  Age: 61 Year
  Sex: Female

DRUGS (2)
  1. AVAPRO [Suspect]
  2. TAXOTERE [Suspect]
     Indication: BREAST CANCER
     Dosage: DOSE REDUCED BY 20%
     Dates: start: 20080821, end: 20080914

REACTIONS (4)
  - ABDOMINAL PAIN UPPER [None]
  - DIARRHOEA [None]
  - NERVE INJURY [None]
  - SKIN EXFOLIATION [None]
